FAERS Safety Report 26162542 (Version 1)
Quarter: 2025Q4

REPORT INFORMATION
  Report Type: Spontaneous
  Country: US (occurrence: None)
  Receive Date: 20251215
  Receipt Date: 20251215
  Transmission Date: 20260118
  Serious: Yes (Hospitalization)
  Sender: FDA-CTU
  Company Number: None

PATIENT
  Age: 74 Year
  Sex: Male
  Weight: 97.5 kg

DRUGS (11)
  1. ATEZOLIZUMAB [Suspect]
     Active Substance: ATEZOLIZUMAB
     Indication: Bladder cancer
     Dosage: 1200 MG  Q21 DAYS INTRAVENOUS
     Route: 042
     Dates: start: 20240409, end: 20250908
  2. PAROXETINE [Concomitant]
     Active Substance: PAROXETINE
     Dates: start: 20110101
  3. CARBIDOPA\LEVODOPA [Concomitant]
     Active Substance: CARBIDOPA\LEVODOPA
     Dates: start: 20110101
  4. METOPROLOL [Concomitant]
     Active Substance: METOPROLOL
     Dates: start: 20190101
  5. FENOFIBRATE [Concomitant]
     Active Substance: FENOFIBRATE
     Dates: start: 20130101
  6. TRULICITY [Concomitant]
     Active Substance: DULAGLUTIDE
     Dates: start: 20250804
  7. Semgle Insulin [Concomitant]
     Dates: start: 20250801
  8. METFORMIN [Concomitant]
     Active Substance: METFORMIN HYDROCHLORIDE
     Dates: start: 20250102
  9. Amoxicillin-clabulanate [Concomitant]
     Dates: start: 20250925, end: 20251025
  10. CEFUROXIME [Concomitant]
     Active Substance: CEFUROXIME
     Dates: start: 20250927, end: 20251011
  11. FLUCONAZOLE [Concomitant]
     Active Substance: FLUCONAZOLE
     Dates: start: 20250927, end: 20251011

REACTIONS (5)
  - Pyelonephritis [None]
  - Sepsis [None]
  - Clostridium test positive [None]
  - Enteritis [None]
  - Hydronephrosis [None]

NARRATIVE: CASE EVENT DATE: 20251019
